FAERS Safety Report 9809133 (Version 1)
Quarter: 2014Q1

REPORT INFORMATION
  Report Type: Spontaneous
  Country: US (occurrence: US)
  Receive Date: 20140110
  Receipt Date: 20140110
  Transmission Date: 20141002
  Serious: No
  Sender: FDA-Public Use
  Company Number: US-MALLINCKRODT-T201301377

PATIENT
  Age: 51 Year
  Sex: Female

DRUGS (10)
  1. OPTIRAY [Suspect]
     Indication: COMPUTERISED TOMOGRAM
     Dosage: 115 ML, SINGLE
     Route: 042
     Dates: start: 20130304, end: 20130304
  2. ADVAIR [Concomitant]
     Dosage: UNK
  3. ASPIRIN [Concomitant]
  4. CITALOPRAM [Concomitant]
     Dosage: UNK
  5. COMBIVENT [Concomitant]
     Dosage: UNK
  6. CYCLOBENZAPRINE [Concomitant]
     Dosage: UNK
  7. GLYBURIDE [Concomitant]
     Dosage: UNK
  8. METFORMIN [Concomitant]
     Dosage: UNK
  9. NAPROXEN [Concomitant]
     Dosage: UNK
  10. COUGH DROPS [Concomitant]
     Dosage: UNK

REACTIONS (1)
  - Hypersensitivity [Recovered/Resolved]
